FAERS Safety Report 8328041-2 (Version None)
Quarter: 2012Q2

REPORT INFORMATION
  Report Type: 
  Country: None (occurrence: None)
  Receive Date: 20120502
  Receipt Date: 20120420
  Transmission Date: 20120825
  Serious: Yes (Other)
  Sender: FDA-Public Use
  Company Number: PHHY2012CA034551

PATIENT
  Sex: Male

DRUGS (3)
  1. CLOZARIL [Suspect]
     Dosage: 800 MG PER DAY
     Route: 048
  2. CLOZARIL [Suspect]
     Dosage: UKN
     Route: 048
     Dates: start: 20080830, end: 20120305
  3. CLOZARIL [Suspect]
     Dosage: 400MG PER DAY
     Route: 048
     Dates: start: 20120330

REACTIONS (2)
  - REBOUND EFFECT [None]
  - PSYCHOTIC DISORDER [None]
